FAERS Safety Report 8372373-9 (Version None)
Quarter: 2012Q2

REPORT INFORMATION
  Report Type: 
  Country: None (occurrence: None)
  Receive Date: 20120521
  Receipt Date: 20120515
  Transmission Date: 20120825
  Serious: No
  Sender: FDA-Public Use
  Company Number: US-PFIZER INC-2012119898

PATIENT
  Sex: Female

DRUGS (2)
  1. MOBIC [Suspect]
     Indication: ARTHRITIS
     Dosage: UNK
  2. CELEBREX [Suspect]
     Indication: ARTHRITIS
     Dosage: 200 MG, 1X/DAY

REACTIONS (2)
  - DRUG INEFFECTIVE [None]
  - NAUSEA [None]
